FAERS Safety Report 10233485 (Version 2)
Quarter: 2015Q1

REPORT INFORMATION
  Report Type: Report from Study
  Country: NL (occurrence: NL)
  Receive Date: 20140612
  Receipt Date: 20150331
  Transmission Date: 20150720
  Serious: Yes (Hospitalization)
  Sender: FDA-Public Use
  Company Number: PHHY2014NL071010

PATIENT
  Age: 58 Year
  Sex: Female
  Weight: 78.3 kg

DRUGS (8)
  1. CICLESONIDE [Concomitant]
     Active Substance: CICLESONIDE
     Indication: DYSPNOEA
  2. EVEROLIMUS [Suspect]
     Active Substance: EVEROLIMUS
     Indication: BREAST CANCER METASTATIC
     Dosage: 10 MG, QD
     Route: 048
     Dates: start: 20140509, end: 20140604
  3. EVEROLIMUS [Suspect]
     Active Substance: EVEROLIMUS
     Dosage: 10 MG, QD
     Route: 048
     Dates: start: 20140607
  4. DEXAMETHASONE. [Concomitant]
     Active Substance: DEXAMETHASONE
     Indication: PAIN
     Dosage: 3 MG, BID
     Dates: start: 20140519
  5. TIOTROPIUM [Concomitant]
     Active Substance: TIOTROPIUM
     Indication: DYSPNOEA
     Route: 055
  6. EXEMESTANE. [Suspect]
     Active Substance: EXEMESTANE
     Indication: BREAST CANCER METASTATIC
     Dosage: 25 MG, QD
     Route: 048
     Dates: start: 20140509, end: 20140604
  7. CLODRONIC ACID [Concomitant]
     Active Substance: CLODRONIC ACID
     Indication: HYPERCALCAEMIA OF MALIGNANCY
     Dosage: 1040 MG, QD
     Dates: end: 20140608
  8. EXEMESTANE. [Suspect]
     Active Substance: EXEMESTANE
     Dosage: 25 MG, QD
     Route: 048
     Dates: start: 20140607

REACTIONS (5)
  - Abdominal pain upper [Recovered/Resolved]
  - Cough [Recovering/Resolving]
  - Chest pain [Recovered/Resolved]
  - Dyspnoea [Recovered/Resolved]
  - Oesophageal pain [Recovered/Resolved]

NARRATIVE: CASE EVENT DATE: 20140603
